FAERS Safety Report 15264306 (Version 2)
Quarter: 2018Q3

REPORT INFORMATION
  Report Type: Report from Study
  Country: US (occurrence: US)
  Receive Date: 20180810
  Receipt Date: 20180921
  Transmission Date: 20181010
  Serious: Yes (Other)
  Sender: FDA-Public Use
  Company Number: US-SA-2017SA201036

PATIENT
  Age: 42 Year
  Sex: Female

DRUGS (2)
  1. ACYCLOVIR [ACICLOVIR] [Concomitant]
     Active Substance: ACYCLOVIR
     Dosage: UNK UNK, UNK
  2. ALEMTUZUMAB [Suspect]
     Active Substance: ALEMTUZUMAB
     Dosage: 12 MG,QD
     Route: 041
     Dates: start: 20170911, end: 20170915

REACTIONS (7)
  - Leukopenia [Not Recovered/Not Resolved]
  - Headache [Recovered/Resolved]
  - Lymphocyte count decreased [Not Recovered/Not Resolved]
  - Dysstasia [Recovered/Resolved]
  - Hypertension [Recovered/Resolved]
  - Eating disorder [Unknown]
  - Hypotension [Recovered/Resolved]

NARRATIVE: CASE EVENT DATE: 201709
